FAERS Safety Report 21026409 (Version 1)
Quarter: 2022Q2

REPORT INFORMATION
  Report Type: Spontaneous
  Country: US (occurrence: None)
  Receive Date: 20220629
  Receipt Date: 20220629
  Transmission Date: 20220721
  Serious: No
  Sender: FDA-Public Use
  Company Number: None

PATIENT
  Age: 78 Year
  Sex: Male

DRUGS (14)
  1. EVUSHELD [Suspect]
     Active Substance: CILGAVIMAB\TIXAGEVIMAB
     Indication: COVID-19 prophylaxis
     Dates: start: 20220420, end: 20220420
  2. CINACALET [Concomitant]
  3. ISOSORBIDE MONONITRATE ER [Concomitant]
  4. ELIQUIS [Concomitant]
  5. TYLENOL [Concomitant]
  6. ZOFRAN [Concomitant]
  7. MULTI-DAY DOSE [Concomitant]
  8. LIPITOR [Concomitant]
  9. IMODIUM [Concomitant]
     Active Substance: LOPERAMIDE HYDROCHLORIDE
  10. ZOLOFT [Concomitant]
  11. PRILOSEC [Concomitant]
  12. PROGRAF [Concomitant]
  13. METOPROLOL [Concomitant]
     Active Substance: METOPROLOL
  14. MYFORTIC [Concomitant]

REACTIONS (5)
  - Chest pain [None]
  - Supraventricular extrasystoles [None]
  - Bundle branch block right [None]
  - Angina pectoris [None]
  - Aortic valve calcification [None]
